FAERS Safety Report 19646597 (Version 1)
Quarter: 2021Q3

REPORT INFORMATION
  Report Type: Spontaneous
  Country: HR (occurrence: HR)
  Receive Date: 20210802
  Receipt Date: 20210802
  Transmission Date: 20211014
  Serious: Yes (Other)
  Sender: FDA-Public Use
  Company Number: HR-PFIZER INC-202100968253

PATIENT
  Age: 49 Year
  Sex: Male

DRUGS (3)
  1. CYMBALTA [Suspect]
     Active Substance: DULOXETINE HYDROCHLORIDE
     Dosage: 12TBL OF 60MG AND 12 TBL OF 30MG (=1080MG)
     Route: 048
     Dates: start: 20210504, end: 20210504
  2. ZELDOX [Suspect]
     Active Substance: ZIPRASIDONE
     Dosage: 10TBL OF 80MG ZELDOX (=800MG)
     Route: 048
     Dates: start: 20210504, end: 20210504
  3. GLUFORMIN [Suspect]
     Active Substance: METFORMIN HYDROCHLORIDE
     Dosage: 10TBL OF 850MG GLUFORMIN (=8500MG)
     Route: 048
     Dates: start: 20210504, end: 20210504

REACTIONS (3)
  - Intentional overdose [Unknown]
  - Suicide attempt [Unknown]
  - Pancreatitis acute [Unknown]

NARRATIVE: CASE EVENT DATE: 20210504
